FAERS Safety Report 10783477 (Version 4)
Quarter: 2018Q1

REPORT INFORMATION
  Report Type: Spontaneous
  Country: US (occurrence: US)
  Receive Date: 20150210
  Receipt Date: 20180315
  Transmission Date: 20180508
  Serious: Yes (Hospitalization, Disabling, Other)
  Sender: FDA-Public Use
  Company Number: US-009507513-1205USA00958

PATIENT
  Sex: Female
  Weight: 52.15 kg

DRUGS (10)
  1. BONIVA [Suspect]
     Active Substance: IBANDRONATE SODIUM
     Indication: PRODUCT USED FOR UNKNOWN INDICATION
     Dosage: UNK
     Route: 065
     Dates: start: 200210, end: 2010
  2. ACTONEL [Suspect]
     Active Substance: RISEDRONATE SODIUM
     Indication: BONE DENSITY DECREASED
     Dosage: 35 MG, UNK
     Route: 065
     Dates: start: 2007, end: 2010
  3. ALENDRONATE SODIUM. [Suspect]
     Active Substance: ALENDRONATE SODIUM
     Dosage: 70 MG, UNK
     Route: 065
     Dates: start: 20100607
  4. ACTONEL [Suspect]
     Active Substance: RISEDRONATE SODIUM
     Indication: OSTEOPOROSIS
  5. FOSAMAX [Suspect]
     Active Substance: ALENDRONATE SODIUM
     Indication: OSTEOPOROSIS
  6. FOSAMAX PLUS D [Suspect]
     Active Substance: ALENDRONATE SODIUM\CHOLECALCIFEROL
     Indication: OSTEOPOROSIS
     Dosage: UNK
     Route: 048
     Dates: start: 200210, end: 2010
  7. FOSAMAX [Suspect]
     Active Substance: ALENDRONATE SODIUM
     Indication: BONE DENSITY DECREASED
     Dosage: UNK
     Route: 048
     Dates: start: 200004, end: 2010
  8. ALENDRONATE SODIUM. [Suspect]
     Active Substance: ALENDRONATE SODIUM
     Indication: BONE DENSITY DECREASED
     Dosage: UNK
     Route: 048
     Dates: start: 200210, end: 2010
  9. ALENDRONATE SODIUM. [Suspect]
     Active Substance: ALENDRONATE SODIUM
     Indication: OSTEOPOROSIS
  10. ALENDRONATE SODIUM. [Suspect]
     Active Substance: ALENDRONATE SODIUM
     Indication: PRODUCT USED FOR UNKNOWN INDICATION
     Dosage: 70 MG, UNK
     Route: 048
     Dates: start: 20100111, end: 20100302

REACTIONS (42)
  - Sjogren^s syndrome [Unknown]
  - Polyarthritis [Unknown]
  - Nocturia [Unknown]
  - Fear [Unknown]
  - Joint injury [Unknown]
  - Atrophic vulvovaginitis [Not Recovered/Not Resolved]
  - Rheumatoid arthritis [Unknown]
  - Pneumonia [Unknown]
  - Rib fracture [Unknown]
  - Scoliosis [Unknown]
  - Complication associated with device [Unknown]
  - Epicondylitis [Unknown]
  - Bacteraemia [Unknown]
  - Pleurisy [Unknown]
  - Fatigue [Unknown]
  - Femur fracture [Not Recovered/Not Resolved]
  - Intramedullary rod insertion [Unknown]
  - Osteonecrosis of jaw [Unknown]
  - Fatigue [Unknown]
  - Chondrocalcinosis pyrophosphate [Unknown]
  - Adverse event [Unknown]
  - Gastrooesophageal reflux disease [Unknown]
  - Raynaud^s phenomenon [Unknown]
  - Internal fixation of fracture [Unknown]
  - Depression [Unknown]
  - Knee arthroplasty [Unknown]
  - Carpal tunnel syndrome [Unknown]
  - Systemic lupus erythematosus [Unknown]
  - Loss of personal independence in daily activities [Unknown]
  - Osteoporosis [Unknown]
  - Osteopenia [Unknown]
  - Dehydration [Unknown]
  - Arthralgia [Unknown]
  - Cataract [Unknown]
  - Viral infection [Unknown]
  - Low turnover osteopathy [Not Recovered/Not Resolved]
  - Hip arthroplasty [Unknown]
  - Anxiety [Unknown]
  - Cellulitis [Unknown]
  - Chest pain [Unknown]
  - Pyrexia [Unknown]
  - Adult polyglucosan body disease [Unknown]

NARRATIVE: CASE EVENT DATE: 2008
